FAERS Safety Report 8788719 (Version 1)
Quarter: 2012Q4

REPORT INFORMATION
  Report Type: 
  Country: US (occurrence: US)
  Receive Date: 20120916
  Receipt Date: 20120916
  Transmission Date: 20130627
  Serious: No
  Sender: FDA-Public Use
  Company Number: US-009507513-1208USA010797

PATIENT

DRUGS (2)
  1. PEGINTRON [Suspect]
     Indication: HEPATITIS C
     Dosage: 120 Microgram, qow
     Route: 058
     Dates: start: 20120608, end: 20120808
  2. REBETOL [Suspect]
     Dosage: UNK

REACTIONS (1)
  - Haemoglobin decreased [Unknown]
